FAERS Safety Report 11887075 (Version 2)
Quarter: 2016Q1

REPORT INFORMATION
  Report Type: Spontaneous
  Country: US (occurrence: US)
  Receive Date: 20160104
  Receipt Date: 20160128
  Transmission Date: 20160526
  Serious: Yes (Hospitalization, Disabling, Other)
  Sender: FDA-Public Use
  Company Number: US-PFIZER INC-2015472668

PATIENT
  Age: 51 Year
  Sex: Female
  Weight: 97.51 kg

DRUGS (5)
  1. CELEBREX [Suspect]
     Active Substance: CELECOXIB
     Indication: OSTEOARTHRITIS
     Dosage: 200 MG, 2X/DAY
     Route: 048
     Dates: end: 201507
  2. LYRICA [Concomitant]
     Active Substance: PREGABALIN
     Indication: FIBROMYALGIA
     Dosage: 100 MG, 3X/DAY
     Route: 048
     Dates: end: 201507
  3. CELEBREX [Suspect]
     Active Substance: CELECOXIB
     Indication: RHEUMATOID ARTHRITIS
  4. LEVOTHYROXINE. [Concomitant]
     Active Substance: LEVOTHYROXINE
     Indication: THYROID DISORDER
     Dosage: 88 UG, UNK
     Dates: end: 201507
  5. HUMIRA [Concomitant]
     Active Substance: ADALIMUMAB
     Dosage: UNK
     Dates: end: 201507

REACTIONS (11)
  - Condition aggravated [Unknown]
  - Weight increased [Unknown]
  - Quality of life decreased [Unknown]
  - Road traffic accident [Unknown]
  - Bedridden [Recovered/Resolved]
  - Drug ineffective [Unknown]
  - Rheumatoid arthritis [Unknown]
  - Gait disturbance [Unknown]
  - Weight decreased [Unknown]
  - Depression [Unknown]
  - Infection [Unknown]

NARRATIVE: CASE EVENT DATE: 201405
